FAERS Safety Report 12587758 (Version 1)
Quarter: 2016Q3

REPORT INFORMATION
  Report Type: Spontaneous
  Country: FR (occurrence: FR)
  Receive Date: 20160725
  Receipt Date: 20160725
  Transmission Date: 20161109
  Serious: Yes (Hospitalization)
  Sender: FDA-Public Use
  Company Number: FR-PFIZER INC-2016349240

PATIENT
  Age: 65 Year
  Sex: Female

DRUGS (4)
  1. XANAX [Suspect]
     Active Substance: ALPRAZOLAM
     Dosage: UNK
     Dates: start: 2005
  2. IXEL [Concomitant]
     Active Substance: MILNACIPRAN HYDROCHLORIDE
     Dosage: UNK
  3. TAREG [Concomitant]
     Active Substance: VALSARTAN
     Dosage: UNK
  4. BACLOFENE [Suspect]
     Active Substance: BACLOFEN
     Dosage: 120 MG, UNK
     Route: 048
     Dates: start: 201506

REACTIONS (3)
  - Drug dependence [Not Recovered/Not Resolved]
  - Confusional state [Recovered/Resolved]
  - Substance abuse [Not Recovered/Not Resolved]
